FAERS Safety Report 19849338 (Version 2)
Quarter: 2021Q4

REPORT INFORMATION
  Report Type: Report from Study
  Country: US (occurrence: US)
  Receive Date: 20210917
  Receipt Date: 20211030
  Transmission Date: 20220303
  Serious: Yes (Life-Threatening, Hospitalization, Other)
  Sender: FDA-Public Use
  Company Number: US-NOVARTISPH-NVSC2021US210710

PATIENT
  Age: 54 Year
  Sex: Male

DRUGS (1)
  1. ENTRESTO [Suspect]
     Active Substance: SACUBITRIL\VALSARTAN
     Indication: Cardiac failure
     Dosage: UNK, BID
     Route: 048
     Dates: start: 20210810

REACTIONS (7)
  - Pancreatitis [Recovering/Resolving]
  - Blood creatinine decreased [Recovering/Resolving]
  - Cholecystitis infective [Recovering/Resolving]
  - Cholelithiasis [Recovering/Resolving]
  - Blood potassium increased [Recovering/Resolving]
  - Renal failure [Recovering/Resolving]
  - Basedow^s disease [Unknown]

NARRATIVE: CASE EVENT DATE: 20210818
